FAERS Safety Report 20862781 (Version 1)
Quarter: 2022Q2

REPORT INFORMATION
  Report Type: Spontaneous
  Country: JP (occurrence: JP)
  Receive Date: 20220523
  Receipt Date: 20220523
  Transmission Date: 20220721
  Serious: Yes (Other)
  Sender: FDA-Public Use
  Company Number: JP-PFIZER INC-202200721667

PATIENT
  Age: 88 Year
  Sex: Male

DRUGS (1)
  1. TOVIAZ [Suspect]
     Active Substance: FESOTERODINE FUMARATE
     Indication: Hypertonic bladder
     Dosage: 4 MG, 1X/DAY
     Route: 048
     Dates: start: 2022

REACTIONS (3)
  - Cardiac failure [Unknown]
  - Somnolence [Recovering/Resolving]
  - Therapeutic response decreased [Recovered/Resolved]
